FAERS Safety Report 4604925-3 (Version None)
Quarter: 2005Q1

REPORT INFORMATION
  Report Type: 
  Country: None (occurrence: None)
  Receive Date: 20050310
  Receipt Date: 20050310
  Transmission Date: 20050727
  Serious: Yes (Death)
  Sender: FDA-Public Use
  Company Number: None

PATIENT
  Sex: Female
  Weight: 62.8 kg

DRUGS (1)
  1. WARFARIN [Suspect]
     Indication: THROMBOSIS
     Dosage: 5MG   QDAY   ORAL
     Route: 048

REACTIONS (3)
  - INTRAVENTRICULAR HAEMORRHAGE [None]
  - LOSS OF CONSCIOUSNESS [None]
  - SUBDURAL HAEMORRHAGE [None]
